FAERS Safety Report 15746235 (Version 7)
Quarter: 2019Q1

REPORT INFORMATION
  Report Type: Spontaneous
  Country: IT (occurrence: IT)
  Receive Date: 20181220
  Receipt Date: 20190320
  Transmission Date: 20190417
  Serious: Yes (Hospitalization, Other)
  Sender: FDA-Public Use
  Company Number: IT-SA-2018SA387425

PATIENT
  Age: 46 Year
  Sex: Male

DRUGS (3)
  1. FABRAZYME [Suspect]
     Active Substance: AGALSIDASE BETA
     Dosage: 70 MG UNK
     Route: 041
     Dates: start: 20141030
  2. PARACETAMOL [Concomitant]
     Active Substance: ACETAMINOPHEN
     Indication: PREMEDICATION
     Dosage: UNK UNK, UNK
     Route: 065
  3. FABRAZYME [Suspect]
     Active Substance: AGALSIDASE BETA
     Dosage: 70 MG, UNK
     Route: 041

REACTIONS (10)
  - Antibody test positive [Unknown]
  - Malaise [Unknown]
  - Chills [Unknown]
  - Infusion related reaction [Unknown]
  - Loss of consciousness [Unknown]
  - End stage renal disease [Unknown]
  - Pyrexia [Unknown]
  - Agitation [Unknown]
  - Hypotension [Unknown]
  - Hypotension [Not Recovered/Not Resolved]

NARRATIVE: CASE EVENT DATE: 20180801
